FAERS Safety Report 24934055 (Version 1)
Quarter: 2025Q1

REPORT INFORMATION
  Report Type: Report from Study
  Country: FR (occurrence: FR)
  Receive Date: 20250206
  Receipt Date: 20250206
  Transmission Date: 20250409
  Serious: Yes (Death, Hospitalization, Other)
  Sender: EXELIXIS
  Company Number: FR-IPSEN Group, Research and Development-2024-08495

PATIENT
  Age: 53 Year
  Sex: Male
  Weight: 74 kg

DRUGS (4)
  1. CABOMETYX [Suspect]
     Active Substance: CABOZANTINIB S-MALATE
     Indication: Malignant fibrous histiocytoma
     Dosage: 40 MG, QD
     Route: 048
     Dates: start: 20230927, end: 20240423
  2. PEMBROLIZUMAB [Suspect]
     Active Substance: PEMBROLIZUMAB
     Indication: Product used for unknown indication
     Route: 042
     Dates: start: 20230927, end: 20240403
  3. SKENAN [Concomitant]
     Active Substance: MORPHINE SULFATE
     Indication: Tumour pain
     Dates: start: 20240329
  4. MORPHINE SULFATE [Concomitant]
     Active Substance: MORPHINE SULFATE
     Indication: Tumour pain
     Dates: start: 20240329

REACTIONS (1)
  - Malignant neoplasm progression [Fatal]

NARRATIVE: CASE EVENT DATE: 20240428
